FAERS Safety Report 25628316 (Version 1)
Quarter: 2025Q3

REPORT INFORMATION
  Report Type: Spontaneous
  Country: EU (occurrence: EU)
  Receive Date: 20250731
  Receipt Date: 20250731
  Transmission Date: 20251021
  Serious: Yes (Other)
  Sender: AMGEN
  Company Number: EU-AMGEN-DEUSP2025147914

PATIENT
  Age: 69 Year
  Sex: Female

DRUGS (6)
  1. FILGRASTIM [Suspect]
     Active Substance: FILGRASTIM
     Indication: Febrile neutropenia
     Route: 065
  2. FLUOROURACIL [Concomitant]
     Active Substance: FLUOROURACIL
  3. GEMCITABINE [Concomitant]
     Active Substance: GEMCITABINE
  4. OCTREOTIDE [Concomitant]
     Active Substance: OCTREOTIDE
  5. TOPOTECAN [Concomitant]
     Active Substance: TOPOTECAN HYDROCHLORIDE
  6. IFOSFAMIDE [Concomitant]
     Active Substance: IFOSFAMIDE

REACTIONS (2)
  - Nephropathy toxic [Unknown]
  - Hepatotoxicity [Unknown]
